FAERS Safety Report 25320644 (Version 1)
Quarter: 2025Q2

REPORT INFORMATION
  Report Type: Report from Study
  Country: US (occurrence: US)
  Receive Date: 20250515
  Receipt Date: 20250515
  Transmission Date: 20250716
  Serious: No
  Sender: MALLINCKRODT
  Company Number: US-MALLINCKRODT-MNK202501068

PATIENT
  Age: 33 Year
  Sex: Male
  Weight: 180 kg

DRUGS (1)
  1. CORTICOTROPIN [Suspect]
     Active Substance: CORTICOTROPIN
     Indication: Punctate keratitis
     Route: 058
     Dates: start: 20250212

REACTIONS (1)
  - Injection site discharge [Recovered/Resolved]

NARRATIVE: CASE EVENT DATE: 20250201
